FAERS Safety Report 8687498 (Version 2)
Quarter: 2012Q4

REPORT INFORMATION
  Report Type: 
  Country: US (occurrence: US)
  Receive Date: 20120727
  Receipt Date: 20121111
  Transmission Date: 20130627
  Serious: No
  Sender: FDA-Public Use
  Company Number: US-009507513-1207USA008836

PATIENT
  Age: 53 None
  Sex: Male
  Weight: 63.49 kg

DRUGS (8)
  1. VICTRELIS [Suspect]
     Indication: HEPATITIS C
     Dosage: 800 mg, q8h
     Route: 048
     Dates: start: 20120109
  2. PEGINTRON [Suspect]
     Indication: HEPATITIS C
     Dosage: 150 Microgram, qw
     Route: 058
     Dates: start: 20120109
  3. RIBAVIRIN [Suspect]
     Dosage: 600 mg, UNK
     Route: 048
     Dates: start: 20120109
  4. ALPRAZOLAM [Concomitant]
     Dosage: 1 DF, bid
     Route: 048
     Dates: start: 20120621
  5. MEGESTROL ACETATE [Concomitant]
     Dosage: 1 DF, tid
     Route: 048
     Dates: start: 20120423
  6. METHADONE HCL [Concomitant]
     Dosage: 1 DF, qid
     Route: 048
     Dates: start: 20120423
  7. ASCORBIC ACID [Concomitant]
     Dosage: 1 DF, qd
     Route: 048
     Dates: start: 20120517
  8. PROCRIT [Concomitant]
     Dosage: 40000IU/ML(Inject 1 ml weekely)
     Route: 058

REACTIONS (7)
  - Blood count abnormal [Recovering/Resolving]
  - Anaemia [Not Recovered/Not Resolved]
  - Alopecia [Not Recovered/Not Resolved]
  - Neutropenia [Not Recovered/Not Resolved]
  - Anxiety [Not Recovered/Not Resolved]
  - Fatigue [Not Recovered/Not Resolved]
  - Decreased appetite [Not Recovered/Not Resolved]
